FAERS Safety Report 7361111-4 (Version None)
Quarter: 2011Q1

REPORT INFORMATION
  Report Type: 
  Country: None (occurrence: None)
  Receive Date: 20110318
  Receipt Date: 20110309
  Transmission Date: 20110831
  Serious: Yes (Hospitalization)
  Sender: FDA-Public Use
  Company Number: US-BAXTER-2011BH003252

PATIENT
  Age: 56 Year
  Sex: Male

DRUGS (6)
  1. DIANEAL [Suspect]
     Route: 033
     Dates: start: 20071101, end: 20100101
  2. DIANEAL [Suspect]
     Route: 033
     Dates: start: 20100101, end: 20100801
  3. DIANEAL [Suspect]
     Indication: PERITONEAL DIALYSIS
     Route: 033
     Dates: start: 20071101, end: 20100101
  4. DIANEAL [Suspect]
     Route: 033
     Dates: start: 20100801, end: 20110212
  5. DIANEAL [Suspect]
     Route: 033
     Dates: start: 20100101, end: 20100801
  6. DIANEAL [Suspect]
     Route: 033
     Dates: start: 20100801, end: 20110212

REACTIONS (4)
  - VOMITING [None]
  - DYSPNOEA [None]
  - FLUID OVERLOAD [None]
  - ULTRAFILTRATION FAILURE [None]
